FAERS Safety Report 5835804-1 (Version None)
Quarter: 2008Q3

REPORT INFORMATION
  Report Type: 
  Country: None (occurrence: None)
  Receive Date: 20080806
  Receipt Date: 20080804
  Transmission Date: 20090109
  Serious: Yes (Death)
  Sender: FDA-Public Use
  Company Number: AU-BOEHRINGER INGELHEIM GMBH, GERMANY-2008-BP-11916AU

PATIENT
  Sex: Male

DRUGS (2)
  1. SIFROL [Suspect]
     Indication: PARKINSON'S DISEASE
     Route: 048
     Dates: start: 20080701
  2. MADOPAR [Concomitant]
     Indication: PARKINSON'S DISEASE
     Dosage: 1200/300 MG
     Route: 048

REACTIONS (2)
  - CONFUSIONAL STATE [None]
  - RENAL FAILURE [None]
